FAERS Safety Report 19013241 (Version 1)
Quarter: 2021Q1

REPORT INFORMATION
  Report Type: Spontaneous
  Country: CN (occurrence: CN)
  Receive Date: 20210315
  Receipt Date: 20210315
  Transmission Date: 20210420
  Serious: Yes (Hospitalization)
  Sender: FDA-Public Use
  Company Number: CN-PFIZER INC-2021247154

PATIENT
  Age: 65 Year
  Sex: Male
  Weight: 48 kg

DRUGS (1)
  1. ATORVASTATIN CALCIUM. [Suspect]
     Active Substance: ATORVASTATIN CALCIUM
     Indication: ARTERIOSCLEROSIS
     Dosage: 40 MG, 1X/DAY
     Route: 048
     Dates: start: 20210208, end: 20210226

REACTIONS (3)
  - Muscle enzyme increased [Recovering/Resolving]
  - Asthenia [Recovering/Resolving]
  - Blood lactate dehydrogenase increased [Recovering/Resolving]

NARRATIVE: CASE EVENT DATE: 20210226
